FAERS Safety Report 23980095 (Version 1)
Quarter: 2024Q2

REPORT INFORMATION
  Report Type: Spontaneous
  Country: JP (occurrence: JP)
  Receive Date: 20240617
  Receipt Date: 20240617
  Transmission Date: 20240716
  Serious: Yes (Hospitalization, Other)
  Sender: FDA-Public Use
  Company Number: JP-aspen-SDZ2024JP056188AA

PATIENT
  Age: 56 Year
  Sex: Female
  Weight: 56 kg

DRUGS (7)
  1. XYLOCAINE [Suspect]
     Active Substance: LIDOCAINE HYDROCHLORIDE\LIDOCAINE HYDROCHLORIDE ANHYDROUS
     Indication: Anaesthesia procedure
     Dosage: UNK
     Dates: start: 20240520, end: 20240520
  2. DIMETHICONE [Concomitant]
     Active Substance: DIMETHICONE
     Indication: Product used for unknown indication
     Dosage: UNK
     Route: 048
     Dates: start: 20240520, end: 20240520
  3. ISOTONIC SODIUM CHLORIDE SOLUTION [Concomitant]
     Active Substance: SODIUM CHLORIDE
     Dosage: 100 ML
     Route: 065
     Dates: start: 20240520, end: 20240520
  4. ISOTONIC SODIUM CHLORIDE SOLUTION [Concomitant]
     Active Substance: SODIUM CHLORIDE
     Indication: Product used for unknown indication
     Dosage: 50 ML
     Route: 065
     Dates: start: 20240520, end: 20240520
  5. ISOTONIC SODIUM CHLORIDE SOLUTION [Concomitant]
     Active Substance: SODIUM CHLORIDE
     Dosage: 500 ML
     Route: 065
     Dates: start: 20240520, end: 20240520
  6. PROTEASE [Concomitant]
     Active Substance: PROTEASE
     Indication: Product used for unknown indication
     Dosage: UNK
     Route: 048
     Dates: start: 20240520, end: 20240520
  7. SODIUM BICARBONATE [Concomitant]
     Active Substance: SODIUM BICARBONATE
     Indication: Product used for unknown indication
     Dosage: UNK
     Route: 065
     Dates: start: 20240520, end: 20240520

REACTIONS (4)
  - Chest pain [Recovering/Resolving]
  - Pharyngeal stenosis [Recovering/Resolving]
  - Erythema [Recovering/Resolving]
  - Face oedema [Recovering/Resolving]

NARRATIVE: CASE EVENT DATE: 20240520
